FAERS Safety Report 6710237-4 (Version None)
Quarter: 2010Q2

REPORT INFORMATION
  Report Type: 
  Country: None (occurrence: None)
  Receive Date: 20100430
  Receipt Date: 20100406
  Transmission Date: 20101027
  Serious: Yes (Hospitalization)
  Sender: FDA-Public Use
  Company Number: 230080K09GBR

PATIENT
  Age: 7 Year
  Sex: Male

DRUGS (2)
  1. REBIF [Suspect]
     Indication: RELAPSING-REMITTING MULTIPLE SCLEROSIS
     Dosage: 22 MCG
  2. PENICILLIN J (BENZYLPENICILLIN SODIUM) [Suspect]
     Indication: TONSILLITIS
     Dates: start: 20090301, end: 20090301

REACTIONS (4)
  - DEHYDRATION [None]
  - OFF LABEL USE [None]
  - TONSILLITIS [None]
  - VOMITING [None]
